FAERS Safety Report 5270601-X (Version None)
Quarter: 2007Q1

REPORT INFORMATION
  Report Type: 
  Country: None (occurrence: None)
  Receive Date: 20070315
  Receipt Date: 20070307
  Transmission Date: 20070707
  Serious: Yes (Death, Other)
  Sender: FDA-Public Use
  Company Number: 163-20785-06080088

PATIENT
  Age: 66 Year
  Sex: Female

DRUGS (8)
  1. THALOMID [Suspect]
     Indication: MULTIPLE MYELOMA
     Dosage: SEE IMAGE
     Route: 048
     Dates: start: 20020701, end: 20020901
  2. THALOMID [Suspect]
     Indication: MULTIPLE MYELOMA
     Dosage: SEE IMAGE
     Route: 048
     Dates: start: 20020901, end: 20021201
  3. THALOMID [Suspect]
     Indication: MULTIPLE MYELOMA
     Dosage: SEE IMAGE
     Route: 048
     Dates: start: 20030210
  4. DECADRON [Suspect]
     Indication: MULTIPLE MYELOMA
  5. VINCRISTINE [Suspect]
  6. ADRIAMYCIN PFS [Suspect]
  7. MELPHALAN (MELPHALAN) [Suspect]
     Dates: start: 20031101
  8. VELCADE [Suspect]
     Indication: MULTIPLE MYELOMA

REACTIONS (4)
  - MALIGNANT NEOPLASM PROGRESSION [None]
  - MULTIPLE MYELOMA [None]
  - STEM CELL TRANSPLANT [None]
  - TRANSPLANT FAILURE [None]
